FAERS Safety Report 5136989-5 (Version None)
Quarter: 2006Q4

REPORT INFORMATION
  Report Type: 
  Country: None (occurrence: None)
  Receive Date: 20061030
  Receipt Date: 20040409
  Transmission Date: 20070319
  Serious: Yes (Death, Other)
  Sender: FDA-Public Use
  Company Number: PHEH2004US04086

PATIENT
  Age: 51 Year
  Sex: Female

DRUGS (23)
  1. METHADONE HCL [Concomitant]
     Indication: PAIN
     Dosage: UNK, QD
  2. OXYCODONE HCL [Concomitant]
     Indication: PAIN
  3. SYNTHROID [Concomitant]
  4. VIOXX [Concomitant]
  5. ONDANSETRON [Concomitant]
     Indication: NAUSEA
     Dosage: 8 MG, BID
     Dates: start: 20031008
  6. DOXORUBICIN HCL [Concomitant]
     Dosage: 40MG/M2 Q3WKS
     Dates: start: 20040505, end: 20050209
  7. HYDROCORTISONE ACETATE [Concomitant]
     Dosage: 20 MG, BID
  8. VINORELBINE [Concomitant]
     Dosage: 5 MG, UNK
     Route: 042
     Dates: start: 20050525, end: 20050601
  9. CYCLOPHOSPHAMIDE + 5-FU + METHOTREXATE [Concomitant]
     Indication: BREAST CANCER
     Dosage: 600 MG/M2, UNK
     Dates: start: 20031008, end: 20031203
  10. ZOMETA [Suspect]
     Indication: METASTASES TO BONE
     Dosage: 4 MG OVER 15 MINUTES Q4WKS
     Dates: start: 20030604, end: 20040204
  11. CAPECITABINE [Concomitant]
     Dosage: 500 MG X 6 TREATMENTS
     Dates: start: 20010308, end: 20010621
  12. EPOETIN ALFA [Concomitant]
     Dosage: 40,000 X 22 TREATMENTS
     Dates: start: 20010718, end: 20030108
  13. FULVESTRANT [Concomitant]
     Dosage: 250 MG X 16 TREATMENTS
     Dates: start: 20020612, end: 20030910
  14. TAXOL [Concomitant]
     Dosage: 350 MG OVER 3 HOURS
     Dates: start: 20010718, end: 20020515
  15. DEXAMETHASONE SODIUM PHOSPHATE [Concomitant]
     Dosage: 6-8 MG OVER 15 MINUTES
     Dates: start: 20011010, end: 20020515
  16. DIPHENHYDRAMINE HCL [Concomitant]
     Dosage: 50MG OVER 5 MINUTES
     Dates: start: 20010718, end: 20020515
  17. METHYLPREDNISOLONE 4MG TAB [Concomitant]
     Dosage: 40-50 MG OVER 10 MINUTES
     Dates: start: 20010718, end: 20010919
  18. RANITIDINE HYDROCHLORIDE [Concomitant]
     Dosage: 50 MG OVER 20 MINUTES
     Dates: start: 20010718, end: 20020515
  19. CHLORHEXIDINE [Concomitant]
  20. AREDIA [Suspect]
     Indication: METASTASES TO BONE
     Dosage: 90MG Q4WKS
     Dates: start: 19960611, end: 20030430
  21. AREDIA [Suspect]
     Dosage: 60 MG Q8WKS
     Dates: start: 20050112, end: 20050420
  22. PACLITAXEL [Concomitant]
     Dosage: 175 MG/M2 Q3WKS
     Dates: start: 20040107, end: 20040414
  23. GEMCITABINE [Concomitant]
     Dosage: 800 MG/M2, QW
     Dates: start: 20050309, end: 20050504

REACTIONS (4)
  - MALIGNANT NEOPLASM PROGRESSION [None]
  - OSTEONECROSIS [None]
  - PAIN IN JAW [None]
  - TOOTH EXTRACTION [None]
